FAERS Safety Report 23667015 (Version 1)
Quarter: 2024Q1

REPORT INFORMATION
  Report Type: Spontaneous
  Country: ES (occurrence: ES)
  Receive Date: 20240325
  Receipt Date: 20240325
  Transmission Date: 20240410
  Serious: Yes (Other)
  Sender: FDA-Public Use
  Company Number: None

PATIENT
  Age: 70 Year
  Sex: Female
  Weight: 100 kg

DRUGS (9)
  1. METFORMIN\SITAGLIPTIN [Concomitant]
     Active Substance: METFORMIN\SITAGLIPTIN
     Indication: Type 2 diabetes mellitus
     Dosage: 1575 MG, QD (50 MG/1,000 MG 56 MODIFIED-RELEASE TABLETS)
     Route: 048
     Dates: start: 20201214
  2. CYANOCOBALAMIN [Concomitant]
     Active Substance: CYANOCOBALAMIN
     Indication: Vitamin B12 decreased
     Dosage: 1000 ?G, QW
     Route: 030
     Dates: start: 20201001
  3. VALSARTAN [Concomitant]
     Active Substance: VALSARTAN
     Indication: Hypertension
     Dosage: 160 MG, QOD
     Route: 048
     Dates: start: 20221028
  4. MANIDIPINE [Concomitant]
     Active Substance: MANIDIPINE
     Indication: Hypertension
     Dosage: 0.25 MG, QD
     Route: 048
     Dates: start: 20240201
  5. LEVOTHYROXINE SODIUM [Concomitant]
     Active Substance: LEVOTHYROXINE SODIUM
     Indication: Post procedural hypothyroidism
     Dosage: 750 ?G, QW
     Route: 048
     Dates: start: 20220428
  6. CELECOXIB [Concomitant]
     Active Substance: CELECOXIB
     Indication: Osteoarthritis
     Dosage: 200 MG 30 CAPSULES
     Route: 048
     Dates: start: 20230731
  7. RYBELSUS [Suspect]
     Active Substance: SEMAGLUTIDE
     Indication: Type 2 diabetes mellitus
     Dosage: 3MG
     Route: 048
     Dates: start: 20240131, end: 20240223
  8. PANTOPRAZOLE [Concomitant]
     Active Substance: PANTOPRAZOLE
     Indication: Melaena
     Dosage: 20 MG, QD
     Route: 048
     Dates: start: 20160915
  9. LACOSAMIDE [Concomitant]
     Active Substance: LACOSAMIDE
     Indication: Cerebral haemorrhage
     Dosage: 100 MG, QOD
     Route: 048
     Dates: start: 20201204

REACTIONS (5)
  - Movement disorder [Recovered/Resolved]
  - Aphasia [Recovered/Resolved]
  - Asthenia [Recovered/Resolved]
  - Dizziness [Recovered/Resolved]
  - Nausea [Recovered/Resolved]

NARRATIVE: CASE EVENT DATE: 20240218
